FAERS Safety Report 7479313-5 (Version None)
Quarter: 2011Q2

REPORT INFORMATION
  Report Type: 
  Country: None (occurrence: None)
  Receive Date: 20110513
  Receipt Date: 20110511
  Transmission Date: 20111010
  Serious: Yes (Other)
  Sender: FDA-Public Use
  Company Number: US-PFIZER INC-2004063429

PATIENT
  Sex: Male

DRUGS (4)
  1. TARKA [Concomitant]
     Indication: BLOOD PRESSURE
     Dosage: 4/240
     Dates: start: 20020816, end: 20040717
  2. CLONIDINE [Concomitant]
     Indication: BLOOD PRESSURE
     Dosage: 0.3 MG, UNK
     Dates: start: 20020816, end: 20040717
  3. NEURONTIN [Suspect]
     Indication: PAIN
  4. NEURONTIN [Suspect]
     Indication: PERIPHERAL VASCULAR DISORDER
     Dosage: 300 MG/400 MG
     Dates: start: 20020816

REACTIONS (9)
  - AMNESIA [None]
  - DRUG INEFFECTIVE FOR UNAPPROVED INDICATION [None]
  - EMOTIONAL DISTRESS [None]
  - SUICIDAL BEHAVIOUR [None]
  - INJURY [None]
  - CONFUSIONAL STATE [None]
  - THINKING ABNORMAL [None]
  - DEPRESSION [None]
  - ANXIETY [None]
